FAERS Safety Report 7606767-3 (Version None)
Quarter: 2011Q3

REPORT INFORMATION
  Report Type: 
  Country: None (occurrence: None)
  Receive Date: 20110713
  Receipt Date: 20110706
  Transmission Date: 20111222
  Serious: Yes (Other)
  Sender: FDA-Public Use
  Company Number: BR-PFIZER INC-2011142119

PATIENT
  Age: 44 Year
  Sex: Female
  Weight: 85 kg

DRUGS (4)
  1. DEPO-PROVERA [Suspect]
     Indication: ANAEMIA
     Dosage: 150 MG, ONCE A YEAR (APPROXIMATELY)
     Route: 030
     Dates: start: 20050101, end: 20101101
  2. FLUNARIZINE DIHYDROCHLORIDE [Concomitant]
     Dosage: UNK
     Dates: start: 20040101, end: 20110101
  3. LABIRIN [Concomitant]
     Dosage: 1-2 TABLETS AS NEEDED
     Dates: start: 20110101
  4. DEPO-PROVERA [Suspect]
     Indication: OFF LABEL USE
     Dosage: 150 MG, EVERY 90 DAYS
     Route: 030
     Dates: start: 20010101

REACTIONS (5)
  - DEPRESSION [None]
  - CONDITION AGGRAVATED [None]
  - LABYRINTHITIS [None]
  - AMENORRHOEA [None]
  - METRORRHAGIA [None]
